FAERS Safety Report 13439250 (Version 1)
Quarter: 2017Q2

REPORT INFORMATION
  Report Type: Spontaneous
  Country: DE (occurrence: DE)
  Receive Date: 20170413
  Receipt Date: 20170413
  Transmission Date: 20170830
  Serious: Yes (Other)
  Sender: FDA-Public Use
  Company Number: DE-JNJFOC-20170413675

PATIENT
  Sex: Female
  Weight: 110 kg

DRUGS (2)
  1. TRAMAL [Suspect]
     Active Substance: TRAMADOL
     Indication: CHEST PAIN
     Dosage: FOR 3 YEARS
     Route: 048
  2. TRAMAL [Suspect]
     Active Substance: TRAMADOL
     Indication: PAIN
     Dosage: FOR 3 YEARS
     Route: 048

REACTIONS (3)
  - Drug ineffective [Unknown]
  - Drug use disorder [Recovered/Resolved]
  - Fear of disease [Recovered/Resolved]
